FAERS Safety Report 9664098 (Version 1)
Quarter: 2013Q4

REPORT INFORMATION
  Report Type: Spontaneous
  Country: FR (occurrence: FR)
  Receive Date: 20131101
  Receipt Date: 20131101
  Transmission Date: 20140711
  Serious: Yes (Other)
  Sender: FDA-Public Use
  Company Number: FR-TEVA-439278ISR

PATIENT
  Age: 57 Year
  Sex: Female

DRUGS (1)
  1. LOPERAMIDE [Suspect]

REACTIONS (2)
  - Amylase increased [Recovered/Resolved]
  - Abdominal pain lower [Recovered/Resolved]
